FAERS Safety Report 7001811-9 (Version None)
Quarter: 2010Q3

REPORT INFORMATION
  Report Type: 
  Country: None (occurrence: None)
  Receive Date: 20100920
  Receipt Date: 20070905
  Transmission Date: 20110219
  Serious: Yes (Other)
  Sender: FDA-Public Use
  Company Number: US-ASTRAZENECA-2007UW16867

PATIENT
  Age: 623 Month
  Sex: Female
  Weight: 80.7 kg

DRUGS (14)
  1. SEROQUEL [Suspect]
     Dosage: 200-400 MG
     Route: 048
     Dates: start: 20050720
  2. RISPERDAL [Concomitant]
     Indication: SLEEP DISORDER
     Dates: start: 20040101, end: 20041001
  3. RISPERDAL [Concomitant]
     Indication: DEPRESSION
     Dates: start: 20040101, end: 20041001
  4. RISPERDAL [Concomitant]
     Dosage: 2-3 MG,DISPENSED
     Dates: start: 20041026
  5. RISPERDAL [Concomitant]
     Dosage: 2-3 MG,DISPENSED
     Dates: start: 20041026
  6. ABILIFY [Concomitant]
  7. GEODON [Concomitant]
     Route: 048
     Dates: start: 20050719
  8. CYMBALTA [Concomitant]
     Route: 048
     Dates: start: 20050719
  9. CLONIDINE [Concomitant]
     Route: 048
     Dates: start: 20060202
  10. ASPIRIN [Concomitant]
     Route: 048
     Dates: start: 20060202
  11. AMBIEN [Concomitant]
     Dosage: 10-12.5 MG
     Dates: start: 20041004
  12. VYTORIN [Concomitant]
     Dosage: 10/40 MG ONE A DAY
     Dates: start: 20061107
  13. CELEXA [Concomitant]
     Dates: start: 20061107
  14. TOPROL-XL [Concomitant]
     Dosage: 25-50 MG
     Dates: start: 20060912

REACTIONS (7)
  - BLOOD CHOLESTEROL INCREASED [None]
  - DIABETES MELLITUS [None]
  - DIABETES MELLITUS INADEQUATE CONTROL [None]
  - DIABETIC KETOACIDOSIS [None]
  - FEELING COLD [None]
  - PAIN IN EXTREMITY [None]
  - TYPE 2 DIABETES MELLITUS [None]
